FAERS Safety Report 24165006 (Version 1)
Quarter: 2024Q3

REPORT INFORMATION
  Report Type: Report from Study
  Country: US (occurrence: US)
  Receive Date: 20240802
  Receipt Date: 20240802
  Transmission Date: 20241016
  Serious: Yes (Hospitalization)
  Sender: ABBVIE
  Company Number: US-ABBVIE-5855523

PATIENT
  Sex: Female

DRUGS (2)
  1. SKYRIZI [Suspect]
     Active Substance: RISANKIZUMAB-RZAA
     Indication: Psoriasis
     Route: 058
     Dates: start: 202306, end: 20240722
  2. SKYRIZI [Suspect]
     Active Substance: RISANKIZUMAB-RZAA
     Route: 058
     Dates: start: 202407

REACTIONS (7)
  - Vomiting [Unknown]
  - Gastrointestinal inflammation [Unknown]
  - Product temperature excursion issue [Unknown]
  - Intestinal obstruction [Unknown]
  - Urinary tract infection [Unknown]
  - White blood cell count increased [Unknown]
  - Malaise [Unknown]
